FAERS Safety Report 9552182 (Version 2)
Quarter: 2013Q3

REPORT INFORMATION
  Report Type: Report from Study
  Country: BE (occurrence: BE)
  Receive Date: 20130925
  Receipt Date: 20130925
  Transmission Date: 20140515
  Serious: Yes (Hospitalization)
  Sender: FDA-Public Use
  Company Number: PHHO2012BE004449

PATIENT
  Age: 54 Year
  Sex: Male
  Weight: 106 kg

DRUGS (6)
  1. PLACEBO [Suspect]
     Indication: CORONARY ARTERY DISEASE
     Dosage: CODE NOT BROKEN
     Route: 048
     Dates: start: 20100426, end: 20110117
  2. ALISKIREN [Suspect]
     Dosage: 150 MG, UNK
     Route: 048
  3. GLUCOPHAGE [Concomitant]
     Indication: DIABETES MELLITUS
     Dosage: 850 MG, TID
     Route: 048
  4. GLICLAZIDE [Concomitant]
     Indication: DIABETES MELLITUS
     Dosage: 30 MG, TID
     Route: 048
  5. JANUVIA [Concomitant]
     Indication: DIABETES MELLITUS
     Dosage: 100 MG, QD
     Route: 048
     Dates: start: 20110914
  6. ACE INHIBITOR NOS [Concomitant]

REACTIONS (2)
  - Glycosylated haemoglobin increased [Recovering/Resolving]
  - Diabetes mellitus [Recovered/Resolved]
